FAERS Safety Report 25946073 (Version 1)
Quarter: 2025Q4

REPORT INFORMATION
  Report Type: Spontaneous
  Country: CN (occurrence: CN)
  Receive Date: 20251021
  Receipt Date: 20251021
  Transmission Date: 20260118
  Serious: Yes (Hospitalization)
  Sender: ABBVIE
  Company Number: CN-ABBVIE-6508142

PATIENT
  Age: 66 Year
  Sex: Female
  Weight: 52 kg

DRUGS (4)
  1. VENCLEXTA [Suspect]
     Active Substance: VENETOCLAX
     Indication: Myeloid leukaemia
     Dosage: DAY 2
     Route: 048
     Dates: start: 20250906, end: 20250906
  2. VENCLEXTA [Suspect]
     Active Substance: VENETOCLAX
     Indication: Myeloid leukaemia
     Dosage: DAY 1
     Route: 048
     Dates: start: 20250905, end: 20250905
  3. VENCLEXTA [Suspect]
     Active Substance: VENETOCLAX
     Indication: Myeloid leukaemia
     Dosage: DAY 3 TO DAY 21
     Route: 048
     Dates: start: 20250907, end: 20250926
  4. AZACITIDINE [Suspect]
     Active Substance: AZACITIDINE
     Indication: Myeloid leukaemia
     Dosage: DAY 1 TO DAY 7
     Route: 058
     Dates: start: 20250905, end: 20250911

REACTIONS (3)
  - Granulocytopenia [Recovering/Resolving]
  - Myelosuppression [Recovering/Resolving]
  - Platelet count decreased [Recovering/Resolving]

NARRATIVE: CASE EVENT DATE: 20251003
